FAERS Safety Report 18623302 (Version 1)
Quarter: 2020Q4

REPORT INFORMATION
  Report Type: Spontaneous
  Country: US (occurrence: US)
  Receive Date: 20201216
  Receipt Date: 20201216
  Transmission Date: 20210114
  Serious: Yes (Other)
  Sender: FDA-Public Use
  Company Number: US-AMGEN-USASP2020201618

PATIENT
  Age: 56 Year
  Sex: Female

DRUGS (6)
  1. PEMETREXED. [Concomitant]
     Active Substance: PEMETREXED
  2. LORLATINIB [Concomitant]
     Active Substance: LORLATINIB
  3. BEVACIZUMAB. [Suspect]
     Active Substance: BEVACIZUMAB
     Indication: BRAIN NEOPLASM MALIGNANT
     Dosage: 10 MILLIGRAM/KILOGRAM, Q3WK
     Route: 065
  4. BRIGATINIB [Concomitant]
     Active Substance: BRIGATINIB
  5. BEVACIZUMAB. [Suspect]
     Active Substance: BEVACIZUMAB
     Indication: LUNG NEOPLASM MALIGNANT
     Dosage: UNK
     Route: 065
  6. CARBOPLATIN. [Concomitant]
     Active Substance: CARBOPLATIN

REACTIONS (5)
  - Metastases to liver [Not Recovered/Not Resolved]
  - Metastases to central nervous system [Not Recovered/Not Resolved]
  - Acquired gene mutation [Unknown]
  - Anaplastic lymphoma kinase gene mutation [Unknown]
  - Therapy non-responder [Unknown]
